FAERS Safety Report 18668029 (Version 1)
Quarter: 2020Q4

REPORT INFORMATION
  Report Type: Spontaneous
  Country: US (occurrence: US)
  Receive Date: 20201224
  Receipt Date: 20201224
  Transmission Date: 20210114
  Serious: No
  Sender: FDA-Public Use
  Company Number: None

PATIENT
  Age: 43 Year
  Sex: Male
  Weight: 87.98 kg

DRUGS (1)
  1. REMDESIVIR. [Suspect]
     Active Substance: REMDESIVIR
     Indication: COVID-19
     Dates: start: 20200630, end: 20200703

REACTIONS (3)
  - Therapy interrupted [None]
  - Alanine aminotransferase increased [None]
  - Transaminases increased [None]

NARRATIVE: CASE EVENT DATE: 20200704
